FAERS Safety Report 23100486 (Version 1)
Quarter: 2023Q4

REPORT INFORMATION
  Report Type: Spontaneous
  Country: CN (occurrence: CN)
  Receive Date: 20231024
  Receipt Date: 20231024
  Transmission Date: 20240110
  Serious: Yes (Other)
  Sender: FDA-Public Use
  Company Number: CN-BAYER-2023A150835

PATIENT
  Age: 37 Year
  Sex: Female

DRUGS (1)
  1. ULTRAVIST [Suspect]
     Active Substance: IOPROMIDE
     Indication: Angiogram
     Dosage: 180 ML, ONCE, FRACTIONAL INJECTION
     Route: 042
     Dates: start: 20231018, end: 20231018

REACTIONS (5)
  - Contrast encephalopathy [Recovered/Resolved]
  - Depressed level of consciousness [Recovered/Resolved]
  - Restlessness [Recovered/Resolved]
  - Mania [Recovered/Resolved]
  - Disorganised speech [Recovered/Resolved]

NARRATIVE: CASE EVENT DATE: 20231018
